FAERS Safety Report 25360308 (Version 1)
Quarter: 2025Q2

REPORT INFORMATION
  Report Type: Spontaneous
  Country: FR (occurrence: FR)
  Receive Date: 20250527
  Receipt Date: 20250527
  Transmission Date: 20250717
  Serious: Yes (Hospitalization, Other)
  Sender: CHEPLAPHARM
  Company Number: None

PATIENT
  Age: 24 Year
  Sex: Male
  Weight: 97 kg

DRUGS (12)
  1. QUETIAPINE [Suspect]
     Active Substance: QUETIAPINE
     Indication: Schizophrenia
     Route: 048
     Dates: start: 20250206, end: 20250206
  2. MIDAZOLAM [Suspect]
     Active Substance: MIDAZOLAM
     Indication: Sedation
     Dates: end: 20250227
  3. TERALITHE [Suspect]
     Active Substance: LITHIUM CARBONATE
     Indication: Schizophrenia
     Route: 048
     Dates: start: 20250206, end: 20250206
  4. VENLAFAXINE [Suspect]
     Active Substance: VENLAFAXINE HYDROCHLORIDE
     Indication: Schizophrenia
     Route: 048
     Dates: start: 20250206, end: 20250206
  5. RISPERIDONE [Suspect]
     Active Substance: RISPERIDONE
     Indication: Schizophrenia
     Route: 048
     Dates: start: 20250206, end: 20250206
  6. ZOPICLONE [Suspect]
     Active Substance: ZOPICLONE
     Indication: Schizophrenia
     Route: 048
     Dates: start: 20250206, end: 20250206
  7. ZOPICLONE [Suspect]
     Active Substance: ZOPICLONE
     Indication: Epilepsy
     Route: 048
     Dates: start: 20250206, end: 20250206
  8. PAROXETINE HYDROCHLORIDE [Suspect]
     Active Substance: PAROXETINE HYDROCHLORIDE
     Indication: Depression
     Route: 048
     Dates: start: 20250206, end: 20250206
  9. CLOZAPINE [Suspect]
     Active Substance: CLOZAPINE
     Route: 048
     Dates: start: 20250206, end: 20250206
  10. SUFENTANIL [Suspect]
     Active Substance: SUFENTANIL
     Indication: Sedation
     Dates: end: 20250227
  11. ALCOHOL [Suspect]
     Active Substance: ALCOHOL
  12. BRIVIACT [Concomitant]
     Active Substance: BRIVARACETAM
     Indication: Epilepsy
     Dosage: DAILY DOSE: 50 MILLIGRAM
     Route: 048

REACTIONS (17)
  - Toxicity to various agents [Recovering/Resolving]
  - Coma [Recovering/Resolving]
  - Multiple organ dysfunction syndrome [Recovering/Resolving]
  - Pneumonitis aspiration [Unknown]
  - Acute kidney injury [Recovering/Resolving]
  - Anuria [Recovering/Resolving]
  - Clonic convulsion [Unknown]
  - Respiratory failure [Unknown]
  - Polyneuropathy [Unknown]
  - Pneumonia [Unknown]
  - Overdose [Unknown]
  - Tachycardia [Unknown]
  - Hypertension [Unknown]
  - Staphylococcal infection [Unknown]
  - Respiratory syncytial virus infection [Unknown]
  - Coronavirus infection [Unknown]
  - Lung disorder [Unknown]

NARRATIVE: CASE EVENT DATE: 20250206
